FAERS Safety Report 19765919 (Version 3)
Quarter: 2021Q4

REPORT INFORMATION
  Report Type: Report from Study
  Country: US (occurrence: US)
  Receive Date: 20210831
  Receipt Date: 20211122
  Transmission Date: 20220304
  Serious: Yes (Other)
  Sender: FDA-Public Use
  Company Number: NVSC2021US196420

PATIENT
  Sex: Female

DRUGS (1)
  1. TASIGNA [Suspect]
     Active Substance: NILOTINIB
     Indication: Philadelphia positive chronic myeloid leukaemia
     Dosage: 300 MG, BID
     Route: 048
     Dates: start: 20210813

REACTIONS (7)
  - Atrial fibrillation [Unknown]
  - Abdominal discomfort [Unknown]
  - Skin lesion [Recovering/Resolving]
  - Myalgia [Unknown]
  - Arthralgia [Unknown]
  - Acne [Unknown]
  - Pain [Unknown]
